FAERS Safety Report 17505356 (Version 2)
Quarter: 2020Q3

REPORT INFORMATION
  Report Type: Spontaneous
  Country: JP (occurrence: JP)
  Receive Date: 20200306
  Receipt Date: 20200723
  Transmission Date: 20201102
  Serious: Yes (Death)
  Sender: FDA-Public Use
  Company Number: JP-AMGEN-JPNSP2020036713

PATIENT
  Age: 9 Decade
  Sex: Male

DRUGS (1)
  1. NESP [Suspect]
     Active Substance: DARBEPOETIN ALFA
     Indication: MYELODYSPLASTIC SYNDROME
     Dosage: 120 UG, 1X/WEEK
     Route: 058

REACTIONS (3)
  - Aspiration [Fatal]
  - Pyrexia [Fatal]
  - Hypotension [Fatal]
